FAERS Safety Report 7544465-5 (Version None)
Quarter: 2011Q2

REPORT INFORMATION
  Report Type: 
  Country: None (occurrence: None)
  Receive Date: 20110613
  Receipt Date: 20100607
  Transmission Date: 20111010
  Serious: Yes (Death)
  Sender: FDA-Public Use
  Company Number: PHHY2009JP45260

PATIENT
  Sex: Female
  Weight: 45 kg

DRUGS (5)
  1. RED BLOOD CELLS, CONCENTRATED [Concomitant]
     Dosage: 2 UNITS EVERY DAY
     Dates: start: 20090403, end: 20090416
  2. NEORAL [Concomitant]
     Indication: APLASTIC ANAEMIA
     Dosage: 200 MG
     Route: 048
     Dates: start: 20090303, end: 20090402
  3. PREDNISOLONE [Concomitant]
     Indication: APLASTIC ANAEMIA
     Dosage: 30 MG
     Route: 048
     Dates: start: 20090303, end: 20090402
  4. EXJADE [Suspect]
     Indication: APLASTIC ANAEMIA
     Dosage: 1000 MG, DAILY
     Route: 048
     Dates: start: 20090303, end: 20090402
  5. RED BLOOD CELLS, CONCENTRATED [Concomitant]
     Dosage: 2 UNITS EVERY WEEK
     Dates: start: 20090323, end: 20090402

REACTIONS (4)
  - CYTOMEGALOVIRUS OESOPHAGITIS [None]
  - SHOCK HAEMORRHAGIC [None]
  - CYTOMEGALOVIRUS COLITIS [None]
  - MELAENA [None]
